FAERS Safety Report 7014894-7 (Version None)
Quarter: 2010Q3

REPORT INFORMATION
  Report Type: 
  Country: None (occurrence: None)
  Receive Date: 20100927
  Receipt Date: 20090916
  Transmission Date: 20110219
  Serious: No
  Sender: FDA-Public Use
  Company Number: US-ASTRAZENECA-2009UW03374

PATIENT
  Age: 61 Year
  Sex: Female
  Weight: 61.2 kg

DRUGS (4)
  1. ARIMIDEX [Suspect]
     Indication: BREAST CANCER
     Route: 048
     Dates: start: 20090117
  2. HYDROCHLOROTHIAZIDE [Concomitant]
     Indication: FLUID RETENTION
  3. SYNTHROID [Concomitant]
  4. CITRICAL [Concomitant]

REACTIONS (10)
  - ALOPECIA [None]
  - BACK PAIN [None]
  - COLD SWEAT [None]
  - CONTUSION [None]
  - FATIGUE [None]
  - HOT FLUSH [None]
  - NIGHT SWEATS [None]
  - OESOPHAGITIS [None]
  - PAIN [None]
  - TENDONITIS [None]
